FAERS Safety Report 11686817 (Version 2)
Quarter: 2019Q1

REPORT INFORMATION
  Report Type: Spontaneous
  Country: US (occurrence: US)
  Receive Date: 20151030
  Receipt Date: 20190219
  Transmission Date: 20190417
  Serious: Yes (Other)
  Sender: FDA-Public Use
  Company Number: US-SA-2015SA167135

PATIENT
  Age: 56 Year
  Sex: Female

DRUGS (7)
  1. DILTIAZEM. [Concomitant]
     Active Substance: DILTIAZEM
     Dosage: UNK
  2. AROMASIN [Concomitant]
     Active Substance: EXEMESTANE
     Dosage: UNK
  3. BABY ASPIRIN [Concomitant]
     Active Substance: ASPIRIN
     Dosage: UNK
  4. PANTOPRAZOLE [Concomitant]
     Active Substance: PANTOPRAZOLE
     Dosage: UNK
  5. AMIODARONE [Concomitant]
     Active Substance: AMIODARONE
     Dosage: UNK
  6. SEVELAMER SALT NOT SPECIFIED [Suspect]
     Active Substance: SEVELAMER
     Indication: END STAGE RENAL DISEASE
     Dosage: UNK UNK,UNK
     Route: 065
  7. CARVEDILOL. [Concomitant]
     Active Substance: CARVEDILOL
     Dosage: UNK

REACTIONS (10)
  - Colon cancer metastatic [Unknown]
  - Crystal deposit intestine [Unknown]
  - Dizziness [Unknown]
  - Gastrointestinal haemorrhage [Recovering/Resolving]
  - Rectal haemorrhage [Recovering/Resolving]
  - Mucosal inflammation [Unknown]
  - Dyspnoea [Unknown]
  - Syncope [Unknown]
  - Pallor [Unknown]
  - Mucosal ulceration [Unknown]
